FAERS Safety Report 10187386 (Version 1)
Quarter: 2014Q2

REPORT INFORMATION
  Report Type: Spontaneous
  Country: GB (occurrence: None)
  Receive Date: 20140520
  Receipt Date: 20140520
  Transmission Date: 20141212
  Serious: Yes (Other)
  Sender: FDA-Public Use
  Company Number: AUR-APL-2014-05804

PATIENT
  Age: 80 Year
  Sex: Male
  Weight: 85 kg

DRUGS (10)
  1. PERINDOPRIL (PERINDOPRIL) [Suspect]
     Indication: PRODUCT USED FOR UNKNOWN INDICATION
     Dates: start: 20140501
  2. AMLODIPINE [Concomitant]
  3. CANDESARTAN [Concomitant]
  4. CHLORAMPHENICOL [Concomitant]
  5. FERROUS FUMARATE [Concomitant]
  6. GLYCERYL TRINITRATE [Concomitant]
  7. LOSARTAN [Concomitant]
  8. LOSEC [Concomitant]
  9. PARACETAMOL [Concomitant]
  10. RAMIPRIL [Concomitant]

REACTIONS (1)
  - Diarrhoea [None]
